FAERS Safety Report 5594891-9 (Version None)
Quarter: 2007Q4

REPORT INFORMATION
  Report Type: 
  Country: None (occurrence: None)
  Receive Date: 20071218
  Receipt Date: 20070312
  Transmission Date: 20080405
  Serious: Yes (Other)
  Sender: FDA-Public Use
  Company Number: 2006118570

PATIENT
  Age: 62 Year
  Sex: Male
  Weight: 109.8 kg

DRUGS (4)
  1. BEXTRA [Suspect]
     Indication: INFLAMMATION
     Dosage: 40 MG (20 MG,2 IN 1 D),ORAL
     Route: 048
     Dates: start: 20030401, end: 20041101
  2. ACTOS [Concomitant]
  3. GLUCOVANCE [Concomitant]
  4. COREG [Concomitant]

REACTIONS (1)
  - MYOCARDIAL INFARCTION [None]
